FAERS Safety Report 5507973-4 (Version None)
Quarter: 2007Q4

REPORT INFORMATION
  Report Type: 
  Country: None (occurrence: None)
  Receive Date: 20071106
  Receipt Date: 20071024
  Transmission Date: 20080405
  Serious: Yes (Hospitalization, Other)
  Sender: FDA-Public Use
  Company Number: US-PFIZER INC-2007035149

PATIENT
  Sex: Male

DRUGS (12)
  1. LYRICA [Suspect]
     Indication: MUSCLE SPASMS
  2. LYRICA [Suspect]
     Indication: FORMICATION
  3. CHEMOTHERAPY NOS [Suspect]
     Indication: LUNG NEOPLASM MALIGNANT
     Dates: start: 20070101, end: 20070101
  4. CONSTULOSE [Concomitant]
  5. VITAMIN CAP [Concomitant]
  6. FLEXERIL [Concomitant]
  7. ALBUTEROL [Concomitant]
  8. DIGITEK [Concomitant]
  9. LIPITOR [Concomitant]
  10. ACETYLSALICYLIC ACID SRT [Concomitant]
  11. MAGNESIUM SULFATE [Concomitant]
  12. OXYCODONE HCL [Concomitant]

REACTIONS (5)
  - BLOOD COUNT ABNORMAL [None]
  - LUNG NEOPLASM MALIGNANT [None]
  - MUSCLE SPASMS [None]
  - PNEUMONIA [None]
  - WEIGHT DECREASED [None]
